FAERS Safety Report 14189807 (Version 1)
Quarter: 2017Q4

REPORT INFORMATION
  Report Type: Spontaneous
  Country: US (occurrence: US)
  Receive Date: 20171115
  Receipt Date: 20171115
  Transmission Date: 20180321
  Serious: No
  Sender: FDA-Public Use
  Company Number: US-PFIZER INC-2017492143

PATIENT
  Age: 72 Year
  Sex: Female

DRUGS (1)
  1. DEPO-MEDROL [Suspect]
     Active Substance: METHYLPREDNISOLONE ACETATE
     Indication: RHEUMATOID ARTHRITIS
     Dosage: 20 MG, UNK (INTO L KNEE)
     Route: 014
     Dates: start: 20170831

REACTIONS (1)
  - Drug ineffective [Unknown]
